FAERS Safety Report 5579483-X (Version None)
Quarter: 2008Q1

REPORT INFORMATION
  Report Type: 
  Country: None (occurrence: None)
  Receive Date: 20080102
  Receipt Date: 20071219
  Transmission Date: 20080703
  Serious: Yes (Life-Threatening, Other)
  Sender: FDA-Public Use
  Company Number: GB-JNJFOC-20080100237

PATIENT
  Age: 67 Year
  Sex: Female
  Weight: 60 kg

DRUGS (5)
  1. REMICADE [Suspect]
     Indication: RHEUMATOID ARTHRITIS
     Route: 042
  2. METHOTRXATE [Concomitant]
     Indication: RHEUMATOID ARTHRITIS
     Route: 048
  3. PARACETAMOL [Concomitant]
     Indication: RHEUMATOID ARTHRITIS
     Route: 048
  4. RANTIDINE [Concomitant]
     Indication: ANTACID THERAPY
     Route: 048
  5. VOLTAREN [Concomitant]
     Route: 048

REACTIONS (5)
  - HOT FLUSH [None]
  - INFUSION RELATED REACTION [None]
  - LACRIMATION INCREASED [None]
  - MALAISE [None]
  - PALPITATIONS [None]
